FAERS Safety Report 5282180-1 (Version None)
Quarter: 2007Q1

REPORT INFORMATION
  Report Type: 
  Country: None (occurrence: None)
  Receive Date: 20070330
  Receipt Date: 20070320
  Transmission Date: 20070707
  Serious: Yes (Hospitalization, Other)
  Sender: FDA-Public Use
  Company Number: US-PFIZER INC-2007014301

PATIENT
  Sex: Female
  Weight: 54.4 kg

DRUGS (13)
  1. CHANTIX [Suspect]
  2. SPIRIVA [Interacting]
     Dates: start: 20060101
  3. ALL OTHER THERAPEUTIC PRODUCTS [Suspect]
  4. ALBUTEROL [Interacting]
     Indication: ASTHMA
     Dosage: FREQ:PRN
     Route: 055
  5. ADVAIR DISKUS 100/50 [Interacting]
     Indication: ASTHMA
     Dates: end: 20070315
  6. ATROVENT [Interacting]
     Indication: ASTHMA
  7. KLONOPIN [Concomitant]
  8. LAMICTAL [Concomitant]
  9. PRIMIDONE [Concomitant]
     Route: 048
  10. PROTONIX [Concomitant]
  11. PEPCID [Concomitant]
  12. SEROQUEL [Concomitant]
  13. RESTORIL [Concomitant]

REACTIONS (12)
  - BLOOD CHOLESTEROL INCREASED [None]
  - BLOOD GLUCOSE INCREASED [None]
  - BLOOD SODIUM DECREASED [None]
  - CARDIAC DISORDER [None]
  - CHEST PAIN [None]
  - CONVULSION [None]
  - DRUG INTERACTION [None]
  - DYSPEPSIA [None]
  - DYSPNOEA [None]
  - MELAENA [None]
  - MOBILITY DECREASED [None]
  - PNEUMONIA [None]
